FAERS Safety Report 14382709 (Version 2)
Quarter: 2018Q1

REPORT INFORMATION
  Report Type: Report from Study
  Country: IT (occurrence: IT)
  Receive Date: 20180112
  Receipt Date: 20180131
  Transmission Date: 20180509
  Serious: Yes (Death, Life-Threatening, Other)
  Sender: FDA-Public Use
  Company Number: IT-ASTRAZENECA-2018SE02579

PATIENT

DRUGS (4)
  1. BUDESONIDE. [Suspect]
     Active Substance: BUDESONIDE
     Indication: PRIMARY BILIARY CHOLANGITIS
     Route: 048
  2. FENOFIBRATE. [Suspect]
     Active Substance: FENOFIBRATE
     Indication: PRIMARY BILIARY CHOLANGITIS
     Route: 065
  3. URSODEOXYCHOLIC ACID [Suspect]
     Active Substance: URSODIOL
     Indication: PRIMARY BILIARY CHOLANGITIS
     Route: 065
  4. COLCHICINE. [Suspect]
     Active Substance: COLCHICINE
     Indication: PRIMARY BILIARY CHOLANGITIS
     Route: 065

REACTIONS (11)
  - Chronic hepatic failure [Fatal]
  - Drug ineffective [Fatal]
  - Jaundice cholestatic [Fatal]
  - Product use in unapproved indication [Fatal]
  - Varices oesophageal [Fatal]
  - Hepatic encephalopathy [Fatal]
  - Ascites [Fatal]
  - Portal hypertension [Fatal]
  - Pruritus [Fatal]
  - Disease progression [Fatal]
  - Cardiovascular disorder [Fatal]
